FAERS Safety Report 17172563 (Version 7)
Quarter: 2021Q2

REPORT INFORMATION
  Report Type: Spontaneous
  Country: IN (occurrence: IN)
  Receive Date: 20191218
  Receipt Date: 20210421
  Transmission Date: 20210716
  Serious: Yes (Other)
  Sender: FDA-Public Use
  Company Number: IN-PFIZER INC-2019096696

PATIENT
  Age: 70 Year
  Sex: Female
  Weight: 63.3 kg

DRUGS (7)
  1. FEMPRO [Suspect]
     Active Substance: LETROZOLE
     Dosage: 2.5 MG, 1X/DAY, 1?0?0 X 3 MTH
     Dates: start: 201708
  2. LETROZOLE. [Concomitant]
     Active Substance: LETROZOLE
     Dosage: 2.5 MG
     Dates: start: 201708
  3. PALBACE [Suspect]
     Active Substance: PALBOCICLIB
     Dosage: 125 MG, 1X/DAY (1?0?0, 21 DAYS ON + 1 WK OFF )
     Route: 048
  4. PALBACE [Suspect]
     Active Substance: PALBOCICLIB
     Indication: BREAST CANCER METASTATIC
     Dosage: 125 MG, CYCLIC (ONCE A DAY, 21 DAYS EVERY MONTH X 3 MONTHS)
     Route: 048
     Dates: start: 20170810
  5. PALBACE [Suspect]
     Active Substance: PALBOCICLIB
     Dosage: 125 MG, 1X/DAY (1?0?0 3 WEEKS, 1 WEEK OFF 3 MONTHS)
     Route: 048
     Dates: start: 20201002
  6. CCM [Concomitant]
     Dosage: UNK UNK, 1X/DAY 0?1?0 X 3 MTH
  7. PALBACE [Suspect]
     Active Substance: PALBOCICLIB
     Dosage: 125 MG, CYCLIC (DAILY 3 WEEK EVERY MONTH)
     Route: 048
     Dates: start: 20180601

REACTIONS (3)
  - Pleural effusion [Unknown]
  - Hypertension [Unknown]
  - Weight increased [Unknown]

NARRATIVE: CASE EVENT DATE: 20191210
